FAERS Safety Report 6673434-2 (Version None)
Quarter: 2010Q2

REPORT INFORMATION
  Report Type: 
  Country: None (occurrence: None)
  Receive Date: 20100408
  Receipt Date: 20100406
  Transmission Date: 20101027
  Serious: Yes (Other)
  Sender: FDA-Public Use
  Company Number: KR-PFIZER INC-2010037357

PATIENT
  Age: 76 Year
  Sex: Female

DRUGS (6)
  1. DITRUSITOL [Suspect]
     Indication: CYSTITIS
     Dosage: 2 MG, 1X/DAY BEFORE SLEEP
     Route: 048
     Dates: start: 20100322, end: 20100323
  2. CIPROFLOXACIN HYDROCHLORIDE [Concomitant]
     Dosage: ONE AND HALF A TABLET, 2X/DAY
     Route: 048
     Dates: start: 20100322
  3. ITOPRIDE HYDROCHLORIDE [Concomitant]
     Indication: GASTROINTESTINAL DISORDER
     Dosage: 50 MG, 3X/DAY
     Route: 048
     Dates: start: 20100322
  4. MEDILAC-S [Concomitant]
     Dosage: 1 CAPSULE, 3X/DAY
     Route: 048
     Dates: start: 20100322
  5. POLYCARBOPHIL CALCIUM [Concomitant]
     Dosage: 1 TABLET, 3X/DAY
     Route: 048
     Dates: start: 20100322
  6. VARIDASE [Concomitant]
     Dosage: 1 TABLET, 2X/DAY
     Route: 048
     Dates: start: 20100322

REACTIONS (1)
  - URINE COLOUR ABNORMAL [None]
